FAERS Safety Report 15926352 (Version 3)
Quarter: 2019Q1

REPORT INFORMATION
  Report Type: Spontaneous
  Country: US (occurrence: US)
  Receive Date: 20190206
  Receipt Date: 20190305
  Transmission Date: 20190417
  Serious: Yes (Death, Other)
  Sender: FDA-Public Use
  Company Number: US-ASTRAZENECA-2018SF21172

PATIENT
  Sex: Male

DRUGS (44)
  1. HYDROMORPHONE [Concomitant]
     Active Substance: HYDROMORPHONE
  2. DOCUSATE SODIUM. [Concomitant]
     Active Substance: DOCUSATE SODIUM
  3. COREG [Concomitant]
     Active Substance: CARVEDILOL
  4. PANTOPRAZOLE [Concomitant]
     Active Substance: PANTOPRAZOLE
  5. FLUTICASONE. [Concomitant]
     Active Substance: FLUTICASONE
  6. MIDODRINE [Concomitant]
     Active Substance: MIDODRINE
  7. PERCOCET [Concomitant]
     Active Substance: ACETAMINOPHEN\OXYCODONE HYDROCHLORIDE
  8. ATROPINE. [Concomitant]
     Active Substance: ATROPINE
  9. ARANESP [Concomitant]
     Active Substance: DARBEPOETIN ALFA
  10. XALATAN [Concomitant]
     Active Substance: LATANOPROST
  11. PREDNISOLONE. [Concomitant]
     Active Substance: PREDNISOLONE
  12. CLOPIDOGREL [Concomitant]
     Active Substance: CLOPIDOGREL BISULFATE
  13. DARBEPOETIN ALFA [Concomitant]
     Active Substance: DARBEPOETIN ALFA
  14. VANCOMYCIN [Concomitant]
     Active Substance: VANCOMYCIN
  15. NALOXONE [Concomitant]
     Active Substance: NALOXONE
  16. FLUMAZENIL. [Concomitant]
     Active Substance: FLUMAZENIL
  17. PRILOSEC OTC [Suspect]
     Active Substance: OMEPRAZOLE MAGNESIUM
     Route: 048
     Dates: start: 20121129
  18. FOLIC ACID. [Concomitant]
     Active Substance: FOLIC ACID
  19. FAMOTIDINE. [Concomitant]
     Active Substance: FAMOTIDINE
  20. STREPTOMYCIN [Concomitant]
     Active Substance: STREPTOMYCIN\STREPTOMYCIN SULFATE
  21. ACETAMINOPHEN. [Concomitant]
     Active Substance: ACETAMINOPHEN
  22. RENAGEL [Concomitant]
     Active Substance: SEVELAMER HYDROCHLORIDE
  23. ASPIRIN. [Concomitant]
     Active Substance: ASPIRIN
  24. PREDNISOLONE ACETATE. [Concomitant]
     Active Substance: PREDNISOLONE ACETATE
  25. VITAMIN B12 [Concomitant]
     Active Substance: CYANOCOBALAMIN
  26. FAMOTIDINE. [Concomitant]
     Active Substance: FAMOTIDINE
  27. IMDUR [Concomitant]
     Active Substance: ISOSORBIDE MONONITRATE
  28. FAMOTIDINE. [Concomitant]
     Active Substance: FAMOTIDINE
  29. ALBUMIN [Concomitant]
     Active Substance: ALBUMIN HUMAN
  30. BENADRYL [Concomitant]
     Active Substance: DIPHENHYDRAMINE HYDROCHLORIDE
  31. SIMVASTATIN. [Concomitant]
     Active Substance: SIMVASTATIN
  32. NEXIUM 24HR [Suspect]
     Active Substance: ESOMEPRAZOLE MAGNESIUM
     Route: 048
  33. MULTIVITAMIN [Concomitant]
     Active Substance: VITAMINS
  34. GABAPENTIN. [Concomitant]
     Active Substance: GABAPENTIN
  35. MORPHINE [Concomitant]
     Active Substance: MORPHINE
  36. LANTUS [Concomitant]
     Active Substance: INSULIN GLARGINE
  37. NEXIUM [Suspect]
     Active Substance: ESOMEPRAZOLE MAGNESIUM
     Route: 048
  38. ONDANSETRON [Concomitant]
     Active Substance: ONDANSETRON
  39. HEPARIN [Concomitant]
     Active Substance: HEPARIN SODIUM
  40. ZOSYN [Concomitant]
     Active Substance: PIPERACILLIN SODIUM\TAZOBACTAM SODIUM
  41. NOREPINEPHRINE. [Concomitant]
     Active Substance: NOREPINEPHRINE
  42. AMBIEN [Concomitant]
     Active Substance: ZOLPIDEM TARTRATE
  43. DILAUDID [Concomitant]
     Active Substance: HYDROMORPHONE HYDROCHLORIDE
  44. GENTAMYCIN [Concomitant]
     Active Substance: GENTAMICIN

REACTIONS (7)
  - Nephrogenic anaemia [Unknown]
  - Renal injury [Unknown]
  - Chronic kidney disease-mineral and bone disorder [Unknown]
  - End stage renal disease [Unknown]
  - Death [Fatal]
  - Renal failure [Unknown]
  - Chronic kidney disease [Unknown]
